FAERS Safety Report 5841527-5 (Version None)
Quarter: 2008Q3

REPORT INFORMATION
  Report Type: 
  Country: None (occurrence: None)
  Receive Date: 20080812
  Receipt Date: 20080728
  Transmission Date: 20090109
  Serious: Yes (Other)
  Sender: FDA-Public Use
  Company Number: US-ASTRAZENECA-2006UW21147

PATIENT
  Age: 73 Year
  Sex: Female
  Weight: 71.2 kg

DRUGS (7)
  1. NEXIUM [Suspect]
     Indication: GASTROOESOPHAGEAL REFLUX DISEASE
     Route: 048
     Dates: start: 20020101, end: 20040101
  2. NEXIUM [Suspect]
     Route: 048
     Dates: start: 20020101, end: 20040101
  3. NEXIUM [Suspect]
     Route: 048
  4. NEXIUM [Suspect]
     Route: 048
  5. PRILOSEC [Suspect]
     Route: 048
  6. CARAFATE [Concomitant]
     Route: 048
  7. XANAX [Concomitant]
     Route: 048

REACTIONS (6)
  - CROHN'S DISEASE [None]
  - DRUG INEFFECTIVE [None]
  - DYSPEPSIA [None]
  - GASTROOESOPHAGEAL REFLUX DISEASE [None]
  - STOMACH DISCOMFORT [None]
  - THROAT IRRITATION [None]
